FAERS Safety Report 21573614 (Version 3)
Quarter: 2022Q4

REPORT INFORMATION
  Report Type: Report from Study
  Country: PR (occurrence: PR)
  Receive Date: 20221109
  Receipt Date: 20221110
  Transmission Date: 20230113
  Serious: Yes (Other)
  Sender: FDA-Public Use
  Company Number: PR-ABBVIE-22K-131-4457658-00

PATIENT
  Sex: Male
  Weight: 65 kg

DRUGS (4)
  1. HUMIRA [Suspect]
     Active Substance: ADALIMUMAB
     Indication: Crohn^s disease
     Dosage: 40MG/0.8ML
     Route: 058
     Dates: start: 20171012
  2. Moderna COVID-19 vaccine mRNA-1273 [Concomitant]
     Indication: COVID-19 immunisation
     Dosage: ONCE -  1ST DOSE
     Route: 030
     Dates: start: 20210414, end: 20210414
  3. Moderna COVID-19 vaccine mRNA-1273 [Concomitant]
     Indication: COVID-19 immunisation
     Dosage: ONCE - 2ND DOSE
     Route: 030
     Dates: start: 20210512, end: 20210512
  4. Moderna COVID-19 vaccine mRNA-1273 [Concomitant]
     Indication: COVID-19 immunisation
     Dosage: ONCE - 3RD DOSE
     Route: 030
     Dates: start: 20210901, end: 20210901

REACTIONS (5)
  - Small intestinal obstruction [Not Recovered/Not Resolved]
  - Weight decreased [Not Recovered/Not Resolved]
  - Diarrhoea [Not Recovered/Not Resolved]
  - Gastrointestinal inflammation [Not Recovered/Not Resolved]
  - Drug ineffective [Unknown]

NARRATIVE: CASE EVENT DATE: 20220101
